FAERS Safety Report 18602002 (Version 2)
Quarter: 2021Q1

REPORT INFORMATION
  Report Type: Spontaneous
  Country: US (occurrence: US)
  Receive Date: 20201210
  Receipt Date: 20210111
  Transmission Date: 20210419
  Serious: Yes (Hospitalization)
  Sender: FDA-Public Use
  Company Number: US-ELI_LILLY_AND_COMPANY-US202012001113

PATIENT
  Age: 39 Year
  Sex: Male
  Weight: 90.8 kg

DRUGS (9)
  1. BAMLANIVIMAB 700MG [Suspect]
     Active Substance: BAMLANIVIMAB
     Indication: COVID-19
     Dosage: 700 MG, SINGLE
     Route: 042
     Dates: start: 20201123, end: 20201123
  2. DEXAMETHASONE. [Suspect]
     Active Substance: DEXAMETHASONE
     Indication: COVID-19
     Dosage: UNK, UNKNOWN
     Route: 065
  3. PREDNISONE. [Suspect]
     Active Substance: PREDNISONE
     Indication: COVID-19
     Dosage: UNK, UNKNOWN
     Route: 048
  4. REMDESIVIR. [Concomitant]
     Active Substance: REMDESIVIR
     Indication: COVID-19
  5. ZINC. [Concomitant]
     Active Substance: ZINC
     Indication: COVID-19
  6. CONVALESCENT PLASMA COVID?19 [Concomitant]
     Indication: COVID-19
     Dosage: UNK, UNKNOWN
     Route: 065
  7. VITAMIN C [Concomitant]
     Active Substance: ASCORBIC ACID
     Indication: COVID-19
  8. THIAMINE. [Concomitant]
     Active Substance: THIAMINE
     Indication: COVID-19
     Dosage: UNK, UNKNOWN
     Route: 042
  9. METHYLPREDNISOLONE. [Suspect]
     Active Substance: METHYLPREDNISOLONE
     Indication: COVID-19
     Dosage: UNK, UNKNOWN
     Route: 042

REACTIONS (4)
  - Respiratory failure [Unknown]
  - Cardiomegaly [Unknown]
  - COVID-19 pneumonia [Unknown]
  - Hyperglycaemia [Unknown]

NARRATIVE: CASE EVENT DATE: 20201123
